FAERS Safety Report 4489216-6 (Version None)
Quarter: 2004Q4

REPORT INFORMATION
  Report Type: 
  Country: None (occurrence: None)
  Receive Date: 20041029
  Receipt Date: 20041018
  Transmission Date: 20050328
  Serious: Yes (Life-Threatening, Other)
  Sender: FDA-Public Use
  Company Number: US-BRISTOL-MYERS SQUIBB COMPANY-12735627

PATIENT
  Age: 49 Year
  Sex: Female
  Weight: 70 kg

DRUGS (31)
  1. STAVUDINE [Suspect]
     Indication: HIV INFECTION
     Dosage: TEMPORARILY WITHHELD ON 24-SEP-2004
     Route: 048
     Dates: start: 20010411
  2. KALETRA [Suspect]
     Indication: HIV INFECTION
     Dosage: TEMPORARILY WITHHELD ON 24-SEP-2004
     Route: 048
     Dates: start: 20010411
  3. EMTRICITABINE [Suspect]
     Indication: HIV INFECTION
     Dosage: TEMPORARILY WITHHELD ON 24-SEP-2004
     Route: 048
     Dates: start: 20010411
  4. ALCOHOL [Suspect]
     Dosage: INCREASED PROBLEMS ALCOHOL INTAKE
  5. TORADOL [Concomitant]
     Dates: start: 20040829
  6. METHADONE HCL [Concomitant]
     Dates: start: 20031218
  7. COLACE [Concomitant]
     Dates: start: 20031218
  8. ZANTAC [Concomitant]
     Route: 048
     Dates: start: 20031218
  9. IBUPROFEN [Concomitant]
     Dates: start: 20040722
  10. ATARAX [Concomitant]
     Route: 048
     Dates: start: 20040617
  11. CLEOCIN T [Concomitant]
     Dates: start: 20040218
  12. PERCOCET [Concomitant]
     Route: 048
     Dates: start: 20040421
  13. VALIUM [Concomitant]
     Dates: start: 20040518
  14. SENOKOT [Concomitant]
     Dates: start: 20040622
  15. M.V.I. [Concomitant]
     Route: 048
     Dates: start: 20040622
  16. TRIONINE [Concomitant]
     Route: 048
     Dates: start: 20040622
  17. FOLATE [Concomitant]
     Route: 048
     Dates: start: 20040622
  18. PAXIL [Concomitant]
     Indication: ANXIETY
     Route: 048
     Dates: start: 20010201
  19. PAXIL [Concomitant]
     Indication: DEPRESSION
     Route: 048
     Dates: start: 20010201
  20. ATIVAN [Concomitant]
     Indication: ANXIETY
     Dates: start: 20010227
  21. HOMATROPINE [Concomitant]
     Dates: start: 20010411
  22. FLUCONAZOLE [Concomitant]
     Dates: start: 20010705
  23. MS CONTIN [Concomitant]
     Route: 048
     Dates: start: 20010412
  24. ALBUTEROL [Concomitant]
     Indication: COUGH
     Dates: start: 20010412
  25. TRAZODONE HCL [Concomitant]
     Indication: INSOMNIA
     Route: 048
     Dates: start: 20010705
  26. MOTRIN [Concomitant]
     Route: 048
     Dates: start: 20010802
  27. ELAVIL [Concomitant]
     Dates: start: 20010906
  28. OS-CAL + D [Concomitant]
     Dates: start: 20020604
  29. UNASYN [Concomitant]
     Route: 042
     Dates: start: 20040421, end: 20040423
  30. AUGMENTIN '125' [Concomitant]
     Dosage: 500 MG AT HOUR OF SLEEP AND ALSO 875 MG EVERY 2 DAYS FROM 24-SEP-2002 TO 02-OCT-2002
     Route: 048
     Dates: start: 20010421, end: 20040527
  31. INFLUENZA VACCINE [Concomitant]
     Dates: start: 20031218, end: 20031218

REACTIONS (6)
  - ALCOHOLISM [None]
  - ASPARTATE AMINOTRANSFERASE INCREASED [None]
  - BLOOD BILIRUBIN INCREASED [None]
  - GAMMA-GLUTAMYLTRANSFERASE INCREASED [None]
  - LIPASE INCREASED [None]
  - POLYSUBSTANCE DEPENDENCE [None]
